FAERS Safety Report 9755958 (Version 2)
Quarter: 2013Q4

REPORT INFORMATION
  Report Type: Other
  Country: IT (occurrence: IT)
  Receive Date: 20131213
  Receipt Date: 20131231
  Transmission Date: 20140711
  Serious: Yes (Death)
  Sender: FDA-Public Use
  Company Number: IT-BRISTOL-MYERS SQUIBB COMPANY-19908193

PATIENT
  Age: 54 Year
  Sex: Female

DRUGS (7)
  1. METFORMIN HCL [Suspect]
  2. ENALAPRIL [Concomitant]
  3. GLIMEPIRIDE [Concomitant]
  4. NIMESULIDE [Concomitant]
  5. IMIPRAMINE [Concomitant]
  6. ASPIRIN [Concomitant]
  7. IBUPROFEN [Concomitant]

REACTIONS (2)
  - Toxicity to various agents [Fatal]
  - Lactic acidosis [Fatal]
